FAERS Safety Report 21272586 (Version 1)
Quarter: 2022Q3

REPORT INFORMATION
  Report Type: Spontaneous
  Country: None (occurrence: US)
  Receive Date: 20220830
  Receipt Date: 20220830
  Transmission Date: 20221026
  Serious: Yes (Life-Threatening, Hospitalization, Disabling)
  Sender: FDA-Public Use
  Company Number: US-California Department of Public Health-2132401

PATIENT
  Age: 5 Month
  Sex: Male
  Weight: 7.9 kg

DRUGS (1)
  1. BABYBIG [Suspect]
     Active Substance: HUMAN BOTULINUM NEUROTOXIN A/B IMMUNE GLOBULIN
     Route: 042
     Dates: start: 20220813, end: 20220813

REACTIONS (6)
  - Respiratory arrest [Recovered/Resolved with Sequelae]
  - Supraventricular tachycardia [Recovered/Resolved]
  - Endotracheal intubation [Recovering/Resolving]
  - Electroencephalogram abnormal [Unknown]
  - Blood gases abnormal [Recovered/Resolved]
  - Blood lactic acid increased [Unknown]

NARRATIVE: CASE EVENT DATE: 20220814
